FAERS Safety Report 7373288-5 (Version None)
Quarter: 2011Q1

REPORT INFORMATION
  Report Type: 
  Country: None (occurrence: None)
  Receive Date: 20110324
  Receipt Date: 20110322
  Transmission Date: 20110831
  Serious: Yes (Hospitalization, Other)
  Sender: FDA-Public Use
  Company Number: US-ABBOTT-10P-163-0639822-00

PATIENT
  Sex: Male
  Weight: 101.24 kg

DRUGS (22)
  1. LISINOPRIL [Concomitant]
     Indication: HYPERTENSION
  2. GABAPENTIN [Concomitant]
     Indication: DIABETES MELLITUS
  3. LEXAPRO [Concomitant]
     Indication: PRODUCT USED FOR UNKNOWN INDICATION
  4. HUMIRA [Suspect]
     Dates: start: 20080601, end: 20090226
  5. METHOTREXATE [Concomitant]
     Indication: PSORIASIS
     Dosage: 2.5MG, 3 Q 12 HOURS X 2 DOSES
     Dates: start: 20090817, end: 20091026
  6. VITAMIN D [Concomitant]
     Indication: VITAMIN SUPPLEMENTATION
  7. LOVASTATIN [Concomitant]
     Indication: PRODUCT USED FOR UNKNOWN INDICATION
  8. CENTRUM SILVER [Concomitant]
     Indication: VITAMIN SUPPLEMENTATION
  9. FISH OIL [Concomitant]
     Indication: SUPPLEMENTATION THERAPY
  10. NORVASC [Concomitant]
     Indication: HYPERTENSION
  11. PLAVIX [Concomitant]
     Indication: PRODUCT USED FOR UNKNOWN INDICATION
  12. BISOPROLOL [Concomitant]
     Indication: PRODUCT USED FOR UNKNOWN INDICATION
  13. LIPITOR [Concomitant]
     Indication: PRODUCT USED FOR UNKNOWN INDICATION
  14. TRILIPIX [Concomitant]
     Indication: BLOOD CHOLESTEROL INCREASED
     Dates: start: 20090101
  15. NEURONTIN [Concomitant]
     Indication: PRODUCT USED FOR UNKNOWN INDICATION
  16. HUMIRA [Suspect]
     Indication: PSORIASIS
     Route: 058
     Dates: start: 20090226, end: 20100201
  17. BYSTOLIC [Concomitant]
     Indication: PRODUCT USED FOR UNKNOWN INDICATION
  18. JANUVIA [Concomitant]
     Indication: PRODUCT USED FOR UNKNOWN INDICATION
  19. DNEA [Concomitant]
     Indication: PRODUCT USED FOR UNKNOWN INDICATION
     Dates: end: 20090416
  20. METHOTREXATE [Concomitant]
     Dosage: 2.5 MG, 2 Q WEEK X 1 MONTH
     Dates: start: 20091026, end: 20100218
  21. ASCORBIC ACID [Concomitant]
     Indication: VITAMIN SUPPLEMENTATION
  22. ASPIRIN [Concomitant]
     Indication: PRODUCT USED FOR UNKNOWN INDICATION

REACTIONS (8)
  - NON-HODGKIN'S LYMPHOMA [None]
  - BACK PAIN [None]
  - DEPENDENCE ON RESPIRATOR [None]
  - COMA [None]
  - PNEUMONIA [None]
  - B-CELL LYMPHOMA [None]
  - LYMPHOMA [None]
  - TRACHEOSTOMY [None]
